FAERS Safety Report 7250003 (Version 4)
Quarter: 2012Q4

REPORT INFORMATION
  Report Type: 
  Country: US (occurrence: US)
  Receive Date: 20100120
  Receipt Date: 20120907
  Transmission Date: 20130627
  Serious: Yes (Hospitalization)
  Sender: FDA-Public Use
  Company Number: US-BAYER-201011568NA

PATIENT
  Age: 29 Year
  Sex: Female
  Weight: 81.82 kg

DRUGS (15)
  1. YAZ [Suspect]
     Indication: MENORRHAGIA
     Route: 048
     Dates: start: 200609, end: 200707
  2. YAZ [Suspect]
     Indication: CONTRACEPTION
  3. CYMBALTA [Concomitant]
     Indication: DEPRESSION
     Dates: start: 200508, end: 200803
  4. HYDROCODONE [Concomitant]
     Indication: PAIN
     Dates: start: 200406, end: 200906
  5. LUNESTA [Concomitant]
     Indication: SLEEP DISORDER
     Dates: start: 200608, end: 200803
  6. OXYCODONE [Concomitant]
     Indication: PAIN
     Dates: start: 200609, end: 200708
  7. ZYPREXA [Concomitant]
     Indication: OBSESSIVE-COMPULSIVE DISORDER
     Dates: start: 200608, end: 200611
  8. ZYPREXA [Concomitant]
     Indication: ANXIETY
  9. PAXIL [Concomitant]
     Indication: OBSESSIVE-COMPULSIVE DISORDER
     Dates: start: 200608, end: 200611
  10. PAXIL [Concomitant]
     Indication: ANXIETY
  11. PROZAC [Concomitant]
     Indication: OBSESSIVE-COMPULSIVE DISORDER
     Dates: start: 200608, end: 200611
  12. PROZAC [Concomitant]
     Indication: ANXIETY
  13. DEPAKOTE [Concomitant]
     Indication: BIPOLAR DISORDER
  14. DEMEROL [Concomitant]
  15. PERCOCET [Concomitant]

REACTIONS (6)
  - Pulmonary embolism [Unknown]
  - Abdominal pain upper [Unknown]
  - Chest pain [Unknown]
  - Dyspnoea [Unknown]
  - Anxiety [Unknown]
  - Panic attack [Unknown]
